FAERS Safety Report 16333561 (Version 1)
Quarter: 2019Q2

REPORT INFORMATION
  Report Type: Spontaneous
  Country: US (occurrence: US)
  Receive Date: 20190520
  Receipt Date: 20190520
  Transmission Date: 20190711
  Serious: No
  Sender: FDA-Public Use
  Company Number: US-UPSHER-SMITH LABORATORIES, LLC-2019USL00159

PATIENT
  Sex: Female

DRUGS (6)
  1. EYLEA [Concomitant]
     Active Substance: AFLIBERCEPT
     Dosage: UNK, EVERY 4 WEEKS
     Route: 047
  2. EYLEA [Concomitant]
     Active Substance: AFLIBERCEPT
     Dosage: UNK, EVERY 5 WEEKS
     Route: 047
  3. EYLEA [Concomitant]
     Active Substance: AFLIBERCEPT
     Dosage: UNK, EVERY 2 MONTHS
     Route: 047
  4. CENTRUM SILVER 50+ [Concomitant]
     Dosage: UNK
     Dates: start: 2012
  5. OCUVITE [Concomitant]
     Active Substance: VITAMINS
     Dosage: UNK
     Dates: start: 2012
  6. KLOR-CON [Suspect]
     Active Substance: POTASSIUM CHLORIDE
     Indication: BLOOD POTASSIUM DECREASED
     Dosage: 20 MEQ, 1X/DAY
     Dates: start: 201703

REACTIONS (2)
  - Malaise [Unknown]
  - Insomnia [Unknown]

NARRATIVE: CASE EVENT DATE: 2017
